FAERS Safety Report 13559408 (Version 2)
Quarter: 2017Q2

REPORT INFORMATION
  Report Type: Spontaneous
  Country: US (occurrence: US)
  Receive Date: 20170518
  Receipt Date: 20170522
  Transmission Date: 20170830
  Serious: Yes (Hospitalization, Other)
  Sender: FDA-Public Use
  Company Number: US-TEVA-769352USA

PATIENT
  Sex: Male
  Weight: 83.54 kg

DRUGS (33)
  1. MODAFINIL. [Suspect]
     Active Substance: MODAFINIL
     Route: 065
     Dates: start: 201410, end: 201411
  2. LIPITOR [Suspect]
     Active Substance: ATORVASTATIN CALCIUM
     Route: 065
  3. CLOPIDOGREL [Concomitant]
     Active Substance: CLOPIDOGREL BISULFATE
     Indication: ANTICOAGULANT THERAPY
  4. ELIQUIS [Concomitant]
     Active Substance: APIXABAN
     Indication: ANTICOAGULANT THERAPY
  5. FOLIC ACID. [Concomitant]
     Active Substance: FOLIC ACID
  6. MODAFINIL. [Suspect]
     Active Substance: MODAFINIL
     Route: 065
     Dates: start: 201308, end: 201309
  7. MODAFINIL. [Suspect]
     Active Substance: MODAFINIL
     Route: 065
     Dates: start: 201607, end: 201609
  8. ATORVASTATIN [Concomitant]
     Active Substance: ATORVASTATIN
     Indication: BLOOD CHOLESTEROL
  9. FERROUS SULFATE. [Concomitant]
     Active Substance: FERROUS SULFATE
     Indication: ANAEMIA
  10. VENTOLIN [Concomitant]
     Active Substance: ALBUTEROL SULFATE
     Indication: CHRONIC OBSTRUCTIVE PULMONARY DISEASE
  11. VITAMIN D3 [Concomitant]
     Active Substance: CHOLECALCIFEROL
  12. ADDERALL [Suspect]
     Active Substance: AMPHETAMINE ASPARTATE\AMPHETAMINE SULFATE\DEXTROAMPHETAMINE SACCHARATE\DEXTROAMPHETAMINE SULFATE
     Route: 065
     Dates: start: 2014
  13. ADVAIR HFA [Concomitant]
     Active Substance: FLUTICASONE PROPIONATE\SALMETEROL XINAFOATE
     Indication: CHRONIC OBSTRUCTIVE PULMONARY DISEASE
  14. MODAFINIL. [Suspect]
     Active Substance: MODAFINIL
     Route: 065
     Dates: start: 201605, end: 201606
  15. HYDROCODONE-APAP [Concomitant]
     Active Substance: ACETAMINOPHEN\HYDROCODONE
     Indication: PAIN
  16. INVOKANA [Concomitant]
     Active Substance: CANAGLIFLOZIN
     Indication: DIABETES MELLITUS
  17. NOVOLOG [Concomitant]
     Active Substance: INSULIN ASPART
     Indication: DIABETES MELLITUS
  18. TRADJENTA [Concomitant]
     Active Substance: LINAGLIPTIN
     Indication: DIABETES MELLITUS
  19. SPIRIVA [Concomitant]
     Active Substance: TIOTROPIUM BROMIDE MONOHYDRATE
     Indication: CHRONIC OBSTRUCTIVE PULMONARY DISEASE
  20. MODAFINIL. [Suspect]
     Active Substance: MODAFINIL
     Route: 065
     Dates: start: 2016, end: 201611
  21. ACARBOSE. [Concomitant]
     Active Substance: ACARBOSE
     Indication: DYSPEPSIA
  22. BUPROPION. [Concomitant]
     Active Substance: BUPROPION
     Indication: SLEEP DISORDER
  23. LYRICA [Concomitant]
     Active Substance: PREGABALIN
     Indication: PAIN
  24. VITAMIN C [Concomitant]
     Active Substance: ASCORBIC ACID
  25. MODAFINIL. [Suspect]
     Active Substance: MODAFINIL
     Indication: SLEEP APNOEA SYNDROME
     Route: 065
     Dates: start: 201304, end: 201306
  26. MODAFINIL. [Suspect]
     Active Substance: MODAFINIL
     Route: 065
     Dates: start: 201505, end: 201506
  27. ELIQUIS [Concomitant]
     Active Substance: APIXABAN
     Indication: ATRIAL FIBRILLATION
  28. ESCITALOPRAM [Concomitant]
     Active Substance: ESCITALOPRAM OXALATE
     Indication: IRRITABILITY
  29. VITAMIN B12 [Concomitant]
     Active Substance: CYANOCOBALAMIN
     Indication: VITAMIN B12 DECREASED
  30. MODAFINIL. [Suspect]
     Active Substance: MODAFINIL
     Route: 065
     Dates: start: 201403, end: 201404
  31. MODAFINIL. [Suspect]
     Active Substance: MODAFINIL
     Route: 065
     Dates: start: 201510, end: 201511
  32. ARMODAFINIL. [Suspect]
     Active Substance: ARMODAFINIL
     Indication: SLEEP APNOEA SYNDROME
     Route: 065
     Dates: start: 2016
  33. METOPROLOL TARTRATE. [Concomitant]
     Active Substance: METOPROLOL TARTRATE
     Indication: HYPERTENSION

REACTIONS (4)
  - Malaise [Recovered/Resolved]
  - Vitamin D decreased [Unknown]
  - Anaemia [Unknown]
  - Drug ineffective [Unknown]

NARRATIVE: CASE EVENT DATE: 2013
